FAERS Safety Report 18866262 (Version 2)
Quarter: 2021Q1

REPORT INFORMATION
  Report Type: Report from Study
  Country: US (occurrence: US)
  Receive Date: 20210209
  Receipt Date: 20210326
  Transmission Date: 20210420
  Serious: No
  Sender: FDA-Public Use
  Company Number: NVSC2021US022678

PATIENT
  Age: 60 Year
  Sex: Female

DRUGS (3)
  1. CARVEDILOL. [Suspect]
     Active Substance: CARVEDILOL
     Indication: PRODUCT USED FOR UNKNOWN INDICATION
     Dosage: UNK
     Route: 065
  2. ENTRESTO [Suspect]
     Active Substance: SACUBITRIL\VALSARTAN
     Indication: PRODUCT USED FOR UNKNOWN INDICATION
     Dosage: 50 MG, BID
     Route: 048
     Dates: start: 20201023
  3. ALDACTONE [Suspect]
     Active Substance: SPIRONOLACTONE
     Indication: PRODUCT USED FOR UNKNOWN INDICATION
     Dosage: UNK
     Route: 065

REACTIONS (14)
  - Somnolence [Recovering/Resolving]
  - Weight decreased [Recovering/Resolving]
  - Dyspnoea [Unknown]
  - Cough [Unknown]
  - Sleep disorder [Unknown]
  - Product administration error [Unknown]
  - Feeling abnormal [Recovering/Resolving]
  - Dizziness [Recovering/Resolving]
  - Dehydration [Unknown]
  - Gastrooesophageal reflux disease [Unknown]
  - Memory impairment [Unknown]
  - Swelling [Recovering/Resolving]
  - Otorrhoea [Unknown]
  - Vertigo [Unknown]

NARRATIVE: CASE EVENT DATE: 20210316
